FAERS Safety Report 6889039-4 (Version None)
Quarter: 2010Q3

REPORT INFORMATION
  Report Type: 
  Country: None (occurrence: None)
  Receive Date: 20100730
  Receipt Date: 20071214
  Transmission Date: 20110219
  Serious: Yes (Other)
  Sender: FDA-Public Use
  Company Number: US-PFIZER INC-2007106695

PATIENT
  Sex: Male
  Weight: 74.8 kg

DRUGS (7)
  1. LIPITOR [Suspect]
     Indication: BLOOD CHOLESTEROL
     Dates: start: 20040709, end: 20040701
  2. CHANTIX [Suspect]
     Indication: SMOKING CESSATION THERAPY
     Dates: start: 20070901
  3. METOPROLOL TARTRATE [Suspect]
     Dates: start: 20070901, end: 20070101
  4. ACETYLSALICYLIC ACID SRT [Concomitant]
  5. VITAMINS [Concomitant]
  6. SIMVASTATIN [Concomitant]
  7. PLAVIX [Concomitant]

REACTIONS (4)
  - ANGINA PECTORIS [None]
  - HYPERSENSITIVITY [None]
  - PRURITUS [None]
  - RASH [None]
